FAERS Safety Report 10072357 (Version 2)
Quarter: 2014Q2

REPORT INFORMATION
  Report Type: Spontaneous
  Country: CN (occurrence: CN)
  Receive Date: 20140411
  Receipt Date: 20140411
  Transmission Date: 20141212
  Serious: Yes (Other)
  Sender: FDA-Public Use
  Company Number: CN-BRISTOL-MYERS SQUIBB COMPANY-20099974

PATIENT
  Sex: Female

DRUGS (1)
  1. BARACLUDE [Suspect]
     Indication: HEPATITIS B
     Route: 048

REACTIONS (2)
  - Abortion [Unknown]
  - Pregnancy [Recovered/Resolved]
